FAERS Safety Report 24177578 (Version 1)
Quarter: 2024Q3

REPORT INFORMATION
  Report Type: Spontaneous
  Country: BD (occurrence: BD)
  Receive Date: 20240806
  Receipt Date: 20240806
  Transmission Date: 20241016
  Serious: Yes (Death, Other)
  Sender: SANDOZ
  Company Number: BD-002147023-NVSC2024BD157413

PATIENT
  Sex: Female

DRUGS (1)
  1. ACLASTA [Suspect]
     Active Substance: ZOLEDRONIC ACID
     Indication: Product used for unknown indication
     Dosage: (5/100 -1S)
     Route: 065

REACTIONS (2)
  - Cerebrovascular accident [Fatal]
  - Heart rate decreased [Fatal]
